FAERS Safety Report 5923810-8 (Version None)
Quarter: 2008Q4

REPORT INFORMATION
  Report Type: 
  Country: None (occurrence: None)
  Receive Date: 20081020
  Receipt Date: 20081015
  Transmission Date: 20090506
  Serious: Yes (Hospitalization)
  Sender: FDA-Public Use
  Company Number: CA-ASTRAZENECA-2008UW22950

PATIENT
  Sex: Male

DRUGS (1)
  1. SEROQUEL [Suspect]
     Route: 048
     Dates: start: 20040401, end: 20070201

REACTIONS (7)
  - ANKLE FRACTURE [None]
  - DIABETES MELLITUS [None]
  - DISABILITY [None]
  - ERECTILE DYSFUNCTION [None]
  - ILL-DEFINED DISORDER [None]
  - OBESITY [None]
  - SLEEP APNOEA SYNDROME [None]
